FAERS Safety Report 6580813-0 (Version None)
Quarter: 2010Q1

REPORT INFORMATION
  Report Type: 
  Country: None (occurrence: None)
  Receive Date: 20100215
  Receipt Date: 20100211
  Transmission Date: 20100710
  Serious: Yes (Hospitalization)
  Sender: FDA-Public Use
  Company Number: US-BIOGENIDEC-2009BI042114

PATIENT
  Age: 55 Year
  Sex: Female
  Weight: 81 kg

DRUGS (4)
  1. TYSABRI [Suspect]
     Indication: MULTIPLE SCLEROSIS
     Route: 042
     Dates: start: 20090902, end: 20091028
  2. TYSABRI [Suspect]
     Route: 042
     Dates: start: 20070705, end: 20080926
  3. DEPAKOTE [Concomitant]
     Indication: CONVULSION
  4. DEPAKOTE [Concomitant]
     Indication: MUSCLE SPASMS

REACTIONS (8)
  - FALL [None]
  - FOLLICULITIS [None]
  - LOWER LIMB FRACTURE [None]
  - METABOLIC ENCEPHALOPATHY [None]
  - SEPSIS [None]
  - STAPHYLOCOCCAL INFECTION [None]
  - SUBCUTANEOUS ABSCESS [None]
  - VIRAL UPPER RESPIRATORY TRACT INFECTION [None]
